FAERS Safety Report 5491968-3 (Version None)
Quarter: 2007Q4

REPORT INFORMATION
  Report Type: 
  Country: None (occurrence: None)
  Receive Date: 20071022
  Receipt Date: 20071016
  Transmission Date: 20080405
  Serious: Yes (Death)
  Sender: FDA-Public Use
  Company Number: A0681874A

PATIENT
  Sex: Male

DRUGS (1)
  1. ZOFRAN [Suspect]
     Dosage: 8MG UNKNOWN
     Route: 048

REACTIONS (2)
  - DEATH [None]
  - NEOPLASM MALIGNANT [None]
